FAERS Safety Report 20795564 (Version 20)
Quarter: 2025Q3

REPORT INFORMATION
  Report Type: Report from Study
  Country: US (occurrence: US)
  Receive Date: 20220506
  Receipt Date: 20250723
  Transmission Date: 20251020
  Serious: Yes (Hospitalization, Other)
  Sender: TAKEDA
  Company Number: US-PAREXEL-2021-KAM-US003363

PATIENT
  Age: 61 Year
  Sex: Female
  Weight: 120 kg

DRUGS (41)
  1. GLASSIA [Suspect]
     Active Substance: .ALPHA.1-PROTEINASE INHIBITOR HUMAN
     Indication: Alpha-1 antitrypsin deficiency
     Dosage: 60 MILLIGRAM/KILOGRAM, 1/WEEK
     Dates: start: 20070208
  2. GLASSIA [Suspect]
     Active Substance: .ALPHA.1-PROTEINASE INHIBITOR HUMAN
     Indication: Asthmatic crisis
     Dosage: 60 MILLIGRAM/KILOGRAM, 1/WEEK
     Dates: start: 20180122
  3. GLASSIA [Suspect]
     Active Substance: .ALPHA.1-PROTEINASE INHIBITOR HUMAN
     Dosage: 60 MILLIGRAM/KILOGRAM, 1/WEEK
  4. EPINEPHRINE [Concomitant]
     Active Substance: EPINEPHRINE
  5. XOPENEX [Concomitant]
     Active Substance: LEVALBUTEROL HYDROCHLORIDE
  6. FUROSEMIDE [Concomitant]
     Active Substance: FUROSEMIDE
  7. VITAMIN E [Concomitant]
     Active Substance: .ALPHA.-TOCOPHEROL
  8. CARDIZEM CD [Concomitant]
     Active Substance: DILTIAZEM HYDROCHLORIDE
  9. SODIUM CHLORIDE [Concomitant]
     Active Substance: SODIUM CHLORIDE
  10. MAGNESIUM OXIDE [Concomitant]
     Active Substance: MAGNESIUM OXIDE
  11. TRELEGY ELLIPTA [Concomitant]
     Active Substance: FLUTICASONE FUROATE\UMECLIDINIUM BROMIDE\VILANTEROL TRIFENATATE
  12. VITAMIN B [Concomitant]
     Active Substance: VITAMIN B
  13. FASENRA [Concomitant]
     Active Substance: BENRALIZUMAB
  14. ELIQUIS [Concomitant]
     Active Substance: APIXABAN
  15. DIPHENHYDRAMINE [Concomitant]
     Active Substance: DIPHENHYDRAMINE
  16. Lmx [Concomitant]
  17. OXYGEN [Concomitant]
     Active Substance: OXYGEN
  18. AZITHROMYCIN [Concomitant]
     Active Substance: AZITHROMYCIN
  19. TRULICITY [Concomitant]
     Active Substance: DULAGLUTIDE
  20. LYRICA [Concomitant]
     Active Substance: PREGABALIN
  21. PROCARDIA [Concomitant]
     Active Substance: NIFEDIPINE
  22. COUMADIN [Concomitant]
     Active Substance: WARFARIN SODIUM
  23. VALACYCLOVIR [Concomitant]
     Active Substance: VALACYCLOVIR HYDROCHLORIDE
  24. CRESTOR [Concomitant]
     Active Substance: ROSUVASTATIN CALCIUM
  25. METOPROLOL SUCCINATE [Concomitant]
     Active Substance: METOPROLOL SUCCINATE
  26. ZINC [Concomitant]
     Active Substance: ZINC
  27. CALCIUM [Concomitant]
     Active Substance: CALCIUM
  28. VITAMIN B12 [Concomitant]
     Active Substance: CYANOCOBALAMIN
  29. CEPHALEXIN [Concomitant]
     Active Substance: CEPHALEXIN
  30. VITAMIN D3 [Concomitant]
     Active Substance: CHOLECALCIFEROL
  31. POTASSIUM [Concomitant]
     Active Substance: POTASSIUM
  32. XANAX [Concomitant]
     Active Substance: ALPRAZOLAM
  33. PULMICORT TURBUHALER [Concomitant]
     Active Substance: BUDESONIDE
  34. BUMETANIDE [Concomitant]
     Active Substance: BUMETANIDE
  35. PREDNISONE [Concomitant]
     Active Substance: PREDNISONE
  36. DILTIAZEM [Concomitant]
     Active Substance: DILTIAZEM
  37. Vit D S Cholecalcifer [Concomitant]
  38. ZINC GLUCONATE [Concomitant]
     Active Substance: ZINC GLUCONATE
  39. DIPHENHYDRAMINE HYDROCHLORIDE [Concomitant]
     Active Substance: DIPHENHYDRAMINE HYDROCHLORIDE
  40. OZEMPIC [Concomitant]
     Active Substance: SEMAGLUTIDE
  41. HUMALOG KWIKPEN [Concomitant]
     Active Substance: INSULIN LISPRO

REACTIONS (33)
  - Cellulitis [Unknown]
  - Sepsis [Unknown]
  - Urinary tract infection [Unknown]
  - Cellulitis staphylococcal [Unknown]
  - Blood pressure decreased [Unknown]
  - Unresponsive to stimuli [Unknown]
  - Heart rate abnormal [Unknown]
  - Peripheral swelling [Unknown]
  - Erythema [Unknown]
  - Pain in extremity [Unknown]
  - Localised infection [Unknown]
  - Menopause [Unknown]
  - Dermatitis contact [Unknown]
  - Fall [Unknown]
  - Productive cough [Unknown]
  - Wound infection [Unknown]
  - Limb injury [Unknown]
  - Skin laceration [Unknown]
  - Contusion [Unknown]
  - Sensitivity to weather change [Unknown]
  - Pain [Not Recovered/Not Resolved]
  - Fungal infection [Unknown]
  - Pelvic discomfort [Unknown]
  - Dysuria [Unknown]
  - Inappropriate schedule of product administration [Unknown]
  - Influenza [Recovering/Resolving]
  - Cough [Not Recovered/Not Resolved]
  - Malaise [Unknown]
  - Asthenia [Unknown]
  - Dizziness [Unknown]
  - Upper respiratory tract infection [Unknown]
  - Dyspnoea [Unknown]
  - Fatigue [Not Recovered/Not Resolved]

NARRATIVE: CASE EVENT DATE: 20220127
